FAERS Safety Report 10502627 (Version 3)
Quarter: 2014Q4

REPORT INFORMATION
  Report Type: Spontaneous
  Country: US (occurrence: US)
  Receive Date: 20141007
  Receipt Date: 20141118
  Transmission Date: 20150528
  Serious: Yes (Other)
  Sender: FDA-Public Use
  Company Number: US-BAYER-2014-147839

PATIENT
  Age: 43 Year
  Sex: Female
  Weight: 59.41 kg

DRUGS (1)
  1. MIRENA [Suspect]
     Active Substance: LEVONORGESTREL
     Indication: CONTRACEPTION
     Dosage: 20 MCG/24HR, CONT
     Route: 015
     Dates: start: 20140926, end: 20140926

REACTIONS (3)
  - Device difficult to use [None]
  - Embedded device [Recovering/Resolving]
  - Complication of device insertion [None]

NARRATIVE: CASE EVENT DATE: 20140926
